FAERS Safety Report 4386283-5 (Version None)
Quarter: 2004Q2

REPORT INFORMATION
  Report Type: 
  Country: None (occurrence: None)
  Receive Date: 20040623
  Receipt Date: 20040607
  Transmission Date: 20050107
  Serious: Yes (Hospitalization, Other)
  Sender: FDA-Public Use
  Company Number: 2004217928US

PATIENT
  Age: 46 Year
  Sex: Female

DRUGS (5)
  1. PROVERA [Suspect]
     Indication: UTERINE HAEMORRHAGE
     Dosage: 10 MG, QD, ORAL
     Route: 048
     Dates: start: 20021008, end: 20021115
  2. FLONASE [Concomitant]
  3. SYNTHROID [Concomitant]
  4. AMITRIPTYLINE HCL [Concomitant]
  5. VIOXX [Concomitant]

REACTIONS (2)
  - ENDOMETRIAL CANCER [None]
  - NASAL CONGESTION [None]
